FAERS Safety Report 17791561 (Version 1)
Quarter: 2020Q2

REPORT INFORMATION
  Report Type: Spontaneous
  Country: GB (occurrence: GB)
  Receive Date: 20200515
  Receipt Date: 20200515
  Transmission Date: 20200714
  Serious: Yes (Life-Threatening, Hospitalization, Other)
  Sender: FDA-Public Use
  Company Number: GB-MYLANLABS-2020M1048026

PATIENT
  Age: 68 Year
  Sex: Female

DRUGS (8)
  1. POVIDONE-IODINE. [Suspect]
     Active Substance: POVIDONE-IODINE
     Indication: AORTIC ANEURYSM REPAIR
     Dosage: UNK
     Route: 061
  2. METRONIDAZOLE. [Concomitant]
     Active Substance: METRONIDAZOLE
     Indication: AORTIC ANEURYSM REPAIR
     Route: 065
  3. CHLORHEXIDINE [Concomitant]
     Active Substance: CHLORHEXIDINE
     Indication: AORTIC ANEURYSM REPAIR
     Route: 061
  4. CISATRACURIUM. [Suspect]
     Active Substance: CISATRACURIUM
     Indication: AORTIC ANEURYSM REPAIR
     Route: 065
  5. ATRACURIUM [Suspect]
     Active Substance: ATRACURIUM
     Indication: AORTIC ANEURYSM REPAIR
     Route: 065
  6. GENTAMICIN. [Suspect]
     Active Substance: GENTAMICIN
     Indication: AORTIC ANEURYSM REPAIR
     Dosage: UNK
     Route: 065
  7. ROCURONIUM [Suspect]
     Active Substance: ROCURONIUM BROMIDE
     Indication: AORTIC ANEURYSM REPAIR
     Dosage: UNK
     Route: 065
  8. PROPOFOL. [Concomitant]
     Active Substance: PROPOFOL
     Indication: AORTIC ANEURYSM REPAIR
     Route: 065

REACTIONS (3)
  - Disease complication [Unknown]
  - Anaphylactic reaction [Unknown]
  - False negative investigation result [Unknown]
